FAERS Safety Report 5301020-5 (Version None)
Quarter: 2007Q1

REPORT INFORMATION
  Report Type: 
  Country: None (occurrence: None)
  Receive Date: 20070201
  Receipt Date: 20061220
  Transmission Date: 20070707
  Serious: No
  Sender: FDA-Public Use
  Company Number: 2006PV027223

PATIENT
  Age: 38 Year
  Sex: Female
  Weight: 90.7194 kg

DRUGS (3)
  1. BYETTA [Suspect]
     Indication: DIABETES MELLITUS NON-INSULIN-DEPENDENT
     Dosage: 5 MCG;BID;SC
     Route: 058
     Dates: start: 20061101
  2. DEPO-PROVERA [Suspect]
     Dosage: SC
     Route: 058
     Dates: start: 20030101
  3. METFORMIN HCL [Concomitant]

REACTIONS (2)
  - MENSTRUAL DISORDER [None]
  - METRORRHAGIA [None]
